FAERS Safety Report 24675651 (Version 1)
Quarter: 2024Q4

REPORT INFORMATION
  Report Type: Spontaneous
  Country: DE (occurrence: DE)
  Receive Date: 20241128
  Receipt Date: 20241128
  Transmission Date: 20250114
  Serious: Yes (Hospitalization)
  Sender: NOVARTIS
  Company Number: DE-002147023-NVSC2024DE052763

PATIENT
  Sex: Male

DRUGS (5)
  1. BEOVU [Suspect]
     Active Substance: BROLUCIZUMAB-DBLL
     Indication: Neovascular age-related macular degeneration
     Dosage: 0.05 ML (6 MG, LEFT EYE)
     Route: 031
     Dates: start: 20200513, end: 20200513
  2. BEOVU [Suspect]
     Active Substance: BROLUCIZUMAB-DBLL
     Dosage: 0.05 ML (6 MG, LEFT EYE)
     Route: 031
     Dates: start: 20200611, end: 20200611
  3. BEOVU [Suspect]
     Active Substance: BROLUCIZUMAB-DBLL
     Dosage: 0.05 ML (6 MG, LEFT EYE)
     Route: 031
     Dates: start: 20200709, end: 20200709
  4. BEOVU [Suspect]
     Active Substance: BROLUCIZUMAB-DBLL
     Dosage: 0.05 ML (6 MG, LEFT EYE)
     Route: 031
     Dates: start: 20200820, end: 20200820
  5. BEOVU [Suspect]
     Active Substance: BROLUCIZUMAB-DBLL
     Dosage: 0.05 ML (6 MG, LEFT EYE)
     Route: 031
     Dates: start: 20201015, end: 20201015

REACTIONS (2)
  - Lenticular opacities [Recovered/Resolved]
  - Visual acuity reduced [Recovered/Resolved]

NARRATIVE: CASE EVENT DATE: 20201125
